FAERS Safety Report 10893170 (Version 4)
Quarter: 2015Q2

REPORT INFORMATION
  Report Type: Spontaneous
  Country: US (occurrence: US)
  Receive Date: 20150306
  Receipt Date: 20150407
  Transmission Date: 20150821
  Serious: Yes (Hospitalization)
  Sender: FDA-Public Use
  Company Number: US-UNITED THERAPEUTICS-UNT-2015-002116

PATIENT
  Age: 69 Year
  Sex: Female
  Weight: 80.27 kg

DRUGS (5)
  1. COUMADIN [Concomitant]
     Active Substance: WARFARIN SODIUM
     Indication: PRODUCT USED FOR UNKNOWN INDICATION
  2. ASPIRIN                            /00002701/ [Concomitant]
     Active Substance: ASPIRIN
     Indication: PRODUCT USED FOR UNKNOWN INDICATION
  3. TYVASO [Suspect]
     Active Substance: TREPROSTINIL
     Dosage: 18-54 MICROGRAMS, QID
  4. TYVASO [Suspect]
     Active Substance: TREPROSTINIL
     Indication: PULMONARY ARTERIAL HYPERTENSION
     Dosage: 18-54 MICROGRAMS, QID
     Dates: start: 20150212
  5. TRACLEER [Concomitant]
     Active Substance: BOSENTAN\BOSENTAN MONOHYDRATE
     Indication: PRODUCT USED FOR UNKNOWN INDICATION

REACTIONS (16)
  - Urinary tract infection [Recovering/Resolving]
  - Dry throat [Unknown]
  - Tremor [Unknown]
  - Cough [Unknown]
  - Pain in extremity [Unknown]
  - Pyrexia [Unknown]
  - Pain in jaw [Unknown]
  - Upper respiratory tract infection [Recovering/Resolving]
  - Oropharyngeal pain [Unknown]
  - Throat irritation [Unknown]
  - Chest discomfort [Unknown]
  - Chest pain [Unknown]
  - Malaise [Unknown]
  - Respiratory tract congestion [Unknown]
  - Nausea [Unknown]
  - Headache [Unknown]

NARRATIVE: CASE EVENT DATE: 201502
